FAERS Safety Report 4440058-7 (Version None)
Quarter: 2004Q3

REPORT INFORMATION
  Report Type: 
  Country: None (occurrence: None)
  Receive Date: 20040902
  Receipt Date: 19960926
  Transmission Date: 20050211
  Serious: Yes (Death, Life-Threatening, Hospitalization)
  Sender: FDA-Public Use
  Company Number: GB-GLAXOSMITHKLINE-B0197787A

PATIENT
  Age: 2 Month
  Sex: Female

DRUGS (2)
  1. FLOXAPEN [Suspect]
     Indication: MASTITIS
     Route: 065
     Dates: start: 19960223
  2. CO-AMOXICLAV [Suspect]
     Indication: MASTITIS
     Dosage: 500MG THREE TIMES PER DAY
     Dates: start: 20040224

REACTIONS (3)
  - DRUG EXPOSURE VIA BREAST MILK [None]
  - HAEMOLYTIC ANAEMIA [None]
  - HEPATITIS NEONATAL [None]
